FAERS Safety Report 24574925 (Version 1)
Quarter: 2024Q4

REPORT INFORMATION
  Report Type: Report from Study
  Country: CA (occurrence: CA)
  Receive Date: 20241104
  Receipt Date: 20241104
  Transmission Date: 20250115
  Serious: Yes (Other)
  Sender: ABBVIE
  Company Number: CA-ABBVIE-5983485

PATIENT
  Sex: Male
  Weight: 63 kg

DRUGS (5)
  1. RINVOQ [Suspect]
     Active Substance: UPADACITINIB
     Indication: Crohn^s disease
     Route: 048
     Dates: start: 20240105
  2. PREDNISONE [Concomitant]
     Active Substance: PREDNISONE
     Indication: Product used for unknown indication
     Dosage: 8 PILLS/DAY
     Dates: start: 20241025
  3. LOMOTIL [Concomitant]
     Active Substance: ATROPINE SULFATE\DIPHENOXYLATE HYDROCHLORIDE
     Indication: Diarrhoea
  4. CODEINE [Concomitant]
     Active Substance: CODEINE
     Indication: Gastrointestinal motility disorder
  5. PANTOPRAZOLE MAGNESIUM [Concomitant]
     Active Substance: PANTOPRAZOLE MAGNESIUM
     Indication: Gastrooesophageal reflux disease

REACTIONS (11)
  - Stenosis [Unknown]
  - Obstruction [Unknown]
  - Small intestinal obstruction [Unknown]
  - Large intestinal obstruction [Unknown]
  - Arthralgia [Unknown]
  - Joint stiffness [Unknown]
  - Erythema nodosum [Unknown]
  - Crohn^s disease [Unknown]
  - Malaise [Unknown]
  - Impaired work ability [Unknown]
  - Social problem [Unknown]

NARRATIVE: CASE EVENT DATE: 20240101
